FAERS Safety Report 9524206 (Version 1)
Quarter: 2013Q1

REPORT INFORMATION
  Report Type: Spontaneous
  Country: US (occurrence: None)
  Receive Date: 20130305
  Receipt Date: 20130305
  Transmission Date: 20140127
  Serious: Yes (Hospitalization)
  Sender: FDA-Public Use
  Company Number: 163-21880-12020834

PATIENT
  Age: 65 Year
  Sex: Male

DRUGS (2)
  1. REVLIMID [Suspect]
     Indication: PLASMA CELL MYELOMA
     Dosage: 25 MG, 1 IN D, PO
     Route: 048
     Dates: start: 201012
  2. ASPIRIN (ACETYLSALICYLIC ACID) ( UKNOWN) [Concomitant]

REACTIONS (1)
  - Ischaemic stroke [None]
